FAERS Safety Report 7420422-4 (Version None)
Quarter: 2011Q2

REPORT INFORMATION
  Report Type: 
  Country: None (occurrence: None)
  Receive Date: 20110406
  Receipt Date: 20110325
  Transmission Date: 20111010
  Serious: Yes (Other)
  Sender: FDA-Public Use
  Company Number: TPA2011A01242

PATIENT
  Age: 56 Year
  Sex: Female
  Weight: 89.8 kg

DRUGS (5)
  1. METFORMIN HCL [Suspect]
  2. BYETTA [Suspect]
     Indication: TYPE 2 DIABETES MELLITUS
     Dosage: 5 MCG, 2 IN 1 D, SUBCUTANEOUS
     Route: 058
     Dates: start: 20060101
  3. GLIPIZIDE [Suspect]
  4. ACTOPLUS MET [Suspect]
  5. SITAGLIPTIN [Suspect]

REACTIONS (10)
  - PRESYNCOPE [None]
  - PNEUMONIA [None]
  - CHRONIC OBSTRUCTIVE PULMONARY DISEASE [None]
  - WEIGHT INCREASED [None]
  - UTERINE LEIOMYOMA [None]
  - CONDITION AGGRAVATED [None]
  - DIABETES MELLITUS INADEQUATE CONTROL [None]
  - ASTHMA [None]
  - BRONCHITIS CHRONIC [None]
  - VISUAL ACUITY REDUCED [None]
